FAERS Safety Report 6408861-1 (Version None)
Quarter: 2009Q4

REPORT INFORMATION
  Report Type: 
  Country: None (occurrence: None)
  Receive Date: 20091019
  Receipt Date: 20091006
  Transmission Date: 20100525
  Serious: Yes (Hospitalization)
  Sender: FDA-Public Use
  Company Number: 2009AL006465

PATIENT
  Age: 29 Year
  Sex: Female

DRUGS (2)
  1. LIDOCAINE HYDROCHLORIDE 2% [Suspect]
     Indication: DYSPEPSIA
     Dosage: 3 GM;PO
     Route: 048
  2. MUCIN [Concomitant]

REACTIONS (16)
  - AGITATION [None]
  - BLOOD PRESSURE SYSTOLIC INCREASED [None]
  - BODY TEMPERATURE INCREASED [None]
  - CONFUSIONAL STATE [None]
  - CONVULSION [None]
  - DIZZINESS [None]
  - ELECTROCARDIOGRAM QT PROLONGED [None]
  - INCORRECT ROUTE OF DRUG ADMINISTRATION [None]
  - LABORATORY TEST ABNORMAL [None]
  - MEDICATION ERROR [None]
  - MUSCLE SPASMS [None]
  - MUSCLE TWITCHING [None]
  - NEUROTOXICITY [None]
  - RESPIRATORY RATE INCREASED [None]
  - SELF-MEDICATION [None]
  - SINUS TACHYCARDIA [None]
